FAERS Safety Report 21186780 (Version 2)
Quarter: 2022Q3

REPORT INFORMATION
  Report Type: Report from Study
  Country: PE (occurrence: None)
  Receive Date: 20220808
  Receipt Date: 20220812
  Transmission Date: 20221027
  Serious: Yes (Congenital Anomaly)
  Sender: FDA-Public Use
  Company Number: PE-Merck Healthcare KGaA-9342014

PATIENT
  Age: 9 Month
  Sex: Male

DRUGS (1)
  1. REBIF [Suspect]
     Active Substance: INTERFERON BETA-1A
     Indication: Multiple sclerosis
     Route: 065

REACTIONS (5)
  - Limb reduction defect [Unknown]
  - Moebius II syndrome [Unknown]
  - Otospondylomegaepiphyseal dysplasia [Unknown]
  - Congenital myopathy [Unknown]
  - Exposure via father [Recovered/Resolved]
